FAERS Safety Report 8194267-4 (Version None)
Quarter: 2012Q1

REPORT INFORMATION
  Report Type: 
  Country: None (occurrence: None)
  Receive Date: 20120308
  Receipt Date: 20120228
  Transmission Date: 20120608
  Serious: Yes (Other)
  Sender: FDA-Public Use
  Company Number: US-JNJFOC-20111008637

PATIENT
  Sex: Male
  Weight: 77.11 kg

DRUGS (2)
  1. STELARA [Suspect]
     Route: 058
  2. STELARA [Suspect]
     Indication: PSORIASIS
     Route: 058
     Dates: start: 20111104

REACTIONS (4)
  - CHEST PAIN [None]
  - HYPERTENSION [None]
  - ELECTROCARDIOGRAM ST-T CHANGE [None]
  - FEELING ABNORMAL [None]
